FAERS Safety Report 6165158-5 (Version None)
Quarter: 2009Q2

REPORT INFORMATION
  Report Type: 
  Country: None (occurrence: None)
  Receive Date: 20090421
  Receipt Date: 20090421
  Transmission Date: 20091009
  Serious: Yes (Other)
  Sender: FDA-Public Use
  Company Number: None

PATIENT
  Age: 53 Year
  Sex: Female
  Weight: 125.1928 kg

DRUGS (2)
  1. TAXOTERE [Suspect]
     Indication: BREAST CANCER
     Dosage: 165 EVERY 3 WEEKS IV DRIP
     Route: 041
     Dates: start: 20090325, end: 20090415
  2. CYTOXAN [Suspect]
     Dosage: 1320 EVERY 3 WEEKS IV DRIP
     Route: 041

REACTIONS (2)
  - NAUSEA [None]
  - VOMITING [None]
